FAERS Safety Report 7282265-4 (Version None)
Quarter: 2011Q1

REPORT INFORMATION
  Report Type: 
  Country: None (occurrence: None)
  Receive Date: 20110125
  Receipt Date: 20110106
  Transmission Date: 20110831
  Serious: Yes (Life-Threatening, Hospitalization, Disabling, Other)
  Sender: FDA-Public Use
  Company Number: 2010P1001449

PATIENT
  Age: 66 Year
  Sex: Female

DRUGS (8)
  1. LEVOTHYROXIXINE [Concomitant]
  2. LABETALOL HCL [Concomitant]
  3. CARBAMAZEPINE [Suspect]
     Indication: TRIGEMINAL NEURALGIA
     Dosage: 200 MG;QID;PO
     Route: 048
     Dates: start: 20080707, end: 20080806
  4. ETODOLAC [Concomitant]
  5. HYDROCODONE [Concomitant]
  6. ACETAMINOPHEN [Concomitant]
  7. MIRAPEX [Concomitant]
  8. PROTONIX [Concomitant]

REACTIONS (77)
  - RASH [None]
  - BLINDNESS [None]
  - EMOTIONAL DISTRESS [None]
  - DYSPHAGIA [None]
  - ASTHENIA [None]
  - ASPARTATE AMINOTRANSFERASE INCREASED [None]
  - VISION BLURRED [None]
  - DYSGEUSIA [None]
  - ACTIVITIES OF DAILY LIVING IMPAIRED [None]
  - CHEST DISCOMFORT [None]
  - DRUG INEFFECTIVE [None]
  - PYREXIA [None]
  - EYE OEDEMA [None]
  - BLOOD ALKALINE PHOSPHATASE INCREASED [None]
  - WHITE BLOOD CELL COUNT INCREASED [None]
  - URINARY TRACT INFECTION [None]
  - EYE PAIN [None]
  - ORAL PAIN [None]
  - DYSPNOEA [None]
  - LIP DISORDER [None]
  - TONGUE COATED [None]
  - OTORRHOEA [None]
  - OROPHARYNGEAL PAIN [None]
  - SKIN DISCOLOURATION [None]
  - SCAR [None]
  - VISUAL IMPAIRMENT [None]
  - MULTI-ORGAN DISORDER [None]
  - POLLAKIURIA [None]
  - TREMOR [None]
  - JOINT SWELLING [None]
  - ONYCHOMADESIS [None]
  - URTICARIA [None]
  - SWELLING [None]
  - STEVENS-JOHNSON SYNDROME [None]
  - MENTAL DISORDER [None]
  - FREQUENT BOWEL MOVEMENTS [None]
  - DYSURIA [None]
  - BACK PAIN [None]
  - MUSCULOSKELETAL PAIN [None]
  - EAR PAIN [None]
  - BREATH ODOUR [None]
  - OEDEMA PERIPHERAL [None]
  - JOINT STIFFNESS [None]
  - SKIN EXFOLIATION [None]
  - HYPERSENSITIVITY [None]
  - DEFORMITY [None]
  - PAIN [None]
  - INFLUENZA LIKE ILLNESS [None]
  - ARTHRALGIA [None]
  - DIZZINESS [None]
  - DIPLOPIA [None]
  - MUSCLE SPASMS [None]
  - CANDIDIASIS [None]
  - ALOPECIA [None]
  - SKIN HYPOPIGMENTATION [None]
  - THERMAL BURN [None]
  - MUCOUS MEMBRANE DISORDER [None]
  - HEADACHE [None]
  - VARICOSE VEIN [None]
  - ANHEDONIA [None]
  - NAUSEA [None]
  - PRURITUS GENERALISED [None]
  - SKIN IRRITATION [None]
  - SCAB [None]
  - VULVOVAGINAL PRURITUS [None]
  - VULVOVAGINAL BURNING SENSATION [None]
  - ALANINE AMINOTRANSFERASE INCREASED [None]
  - MUCOSAL INFLAMMATION [None]
  - COUGH [None]
  - TEMPERATURE INTOLERANCE [None]
  - SKIN LESION [None]
  - MULTIPLE INJURIES [None]
  - TOXIC EPIDERMAL NECROLYSIS [None]
  - CONJUNCTIVAL DISORDER [None]
  - VULVOVAGINAL DISCOMFORT [None]
  - FATIGUE [None]
  - MYALGIA [None]
